FAERS Safety Report 20475121 (Version 1)
Quarter: 2022Q1

REPORT INFORMATION
  Report Type: Spontaneous
  Country: US (occurrence: US)
  Receive Date: 20220215
  Receipt Date: 20220215
  Transmission Date: 20220423
  Serious: No
  Sender: FDA-Public Use
  Company Number: US-PFIZER INC-202101604962

PATIENT
  Age: 55 Year
  Sex: Female

DRUGS (5)
  1. XELJANZ XR [Suspect]
     Active Substance: TOFACITINIB CITRATE
     Indication: Rheumatoid arthritis
     Dosage: 11 MG, DAILY
     Route: 048
     Dates: start: 201909
  2. VITAMIN D3 [Concomitant]
     Active Substance: CHOLECALCIFEROL
     Dosage: 50 UG
  3. VITAMIN C [Concomitant]
     Active Substance: ASCORBIC ACID
     Dosage: 250 MG
  4. ZINC [Concomitant]
     Active Substance: ZINC
     Dosage: UNK(220 50(220)MG)
  5. VENLAFAXINE HCL [Concomitant]
     Active Substance: VENLAFAXINE HYDROCHLORIDE
     Dosage: 100 MG

REACTIONS (3)
  - Rash [Not Recovered/Not Resolved]
  - Neck pain [Not Recovered/Not Resolved]
  - Blood pressure increased [Not Recovered/Not Resolved]
